FAERS Safety Report 11349430 (Version 1)
Quarter: 2015Q3

REPORT INFORMATION
  Report Type: Spontaneous
  Country: US (occurrence: US)
  Receive Date: 20150807
  Receipt Date: 20150807
  Transmission Date: 20151125
  Serious: Yes (Other)
  Sender: FDA-Public Use
  Company Number: PHHY2015US094683

PATIENT
  Age: 10 Year
  Sex: Male

DRUGS (14)
  1. FLUDARABINE [Suspect]
     Active Substance: FLUDARABINE PHOSPHATE
     Indication: STEM CELL TRANSPLANT
     Dosage: 25 MG/M2, UNK
     Route: 065
  2. FLUDARABINE [Suspect]
     Active Substance: FLUDARABINE PHOSPHATE
     Indication: BONE MARROW CONDITIONING REGIMEN
  3. MYCOPHENOLATE MOFETIL. [Suspect]
     Active Substance: MYCOPHENOLATE MOFETIL
     Indication: STEM CELL TRANSPLANT
     Dosage: 15 MG/KG, TID (P.O. OR I.V.)
     Route: 065
  4. ALEFACEPT [Suspect]
     Active Substance: ALEFACEPT
     Indication: STEM CELL TRANSPLANT
     Dosage: 0.5 MG/KG, UNK
     Route: 042
  5. ALEFACEPT [Suspect]
     Active Substance: ALEFACEPT
     Indication: BONE MARROW CONDITIONING REGIMEN
  6. ANTITHYMOCYTE IMMUNOGLOBULIN [Concomitant]
     Active Substance: THYMOCYTE IMMUNE GLOBULIN NOS
     Indication: PRODUCT USED FOR UNKNOWN INDICATION
     Route: 065
  7. MYCOPHENOLATE MOFETIL. [Suspect]
     Active Substance: MYCOPHENOLATE MOFETIL
     Indication: PROPHYLAXIS AGAINST GRAFT VERSUS HOST DISEASE
  8. PREDNISONE. [Suspect]
     Active Substance: PREDNISONE
     Indication: STEM CELL TRANSPLANT
     Dosage: ({.2 MG/KG/DAY), QD
     Route: 065
  9. GRANULOCYTE STIMULATING FACTORS [Concomitant]
     Active Substance: GRANULOCYTE COLONY-STIMULATING FACTOR NOS
     Indication: PRODUCT USED FOR UNKNOWN INDICATION
     Route: 065
  10. CYCLOPHOSPHAMIDE. [Suspect]
     Active Substance: CYCLOPHOSPHAMIDE
     Indication: STEM CELL TRANSPLANT
     Dosage: 10 MG/KG, UNK
     Route: 065
  11. PREDNISONE. [Suspect]
     Active Substance: PREDNISONE
     Indication: BONE MARROW CONDITIONING REGIMEN
  12. CICLOSPORIN [Suspect]
     Active Substance: CYCLOSPORINE
     Indication: STEM CELL TRANSPLANT
     Route: 065
  13. CICLOSPORIN [Suspect]
     Active Substance: CYCLOSPORINE
     Indication: PROPHYLAXIS AGAINST GRAFT VERSUS HOST DISEASE
  14. CYCLOPHOSPHAMIDE. [Suspect]
     Active Substance: CYCLOPHOSPHAMIDE
     Indication: BONE MARROW CONDITIONING REGIMEN

REACTIONS (8)
  - Acute graft versus host disease in skin [Recovered/Resolved]
  - Chronic graft versus host disease in skin [Recovered/Resolved]
  - Stomatitis [Unknown]
  - Alpha haemolytic streptococcal infection [Recovered/Resolved]
  - Bacteraemia [Recovered/Resolved]
  - Chronic graft versus host disease [Recovered/Resolved]
  - Staphylococcal infection [Recovered/Resolved]
  - Toxicity to various agents [Unknown]
